FAERS Safety Report 4489738-8 (Version None)
Quarter: 2004Q4

REPORT INFORMATION
  Report Type: 
  Country: None (occurrence: None)
  Receive Date: 20041101
  Receipt Date: 20041019
  Transmission Date: 20050328
  Serious: Yes (Hospitalization)
  Sender: FDA-Public Use
  Company Number: US-AMGEN-US096062

PATIENT
  Sex: Male

DRUGS (2)
  1. ENBREL [Suspect]
     Indication: PSORIATIC ARTHROPATHY
  2. KEPPRA [Suspect]
     Dates: end: 20040608

REACTIONS (6)
  - BACTERAEMIA [None]
  - CARDIAC FAILURE CONGESTIVE [None]
  - CARNITINE DEFICIENCY [None]
  - CONGESTIVE CARDIOMYOPATHY [None]
  - PERICARDIAL EFFUSION [None]
  - STAPHYLOCOCCAL INFECTION [None]
